FAERS Safety Report 23358545 (Version 1)
Quarter: 2024Q1

REPORT INFORMATION
  Report Type: Spontaneous
  Country: US (occurrence: None)
  Receive Date: 20240101
  Receipt Date: 20240101
  Transmission Date: 20240410
  Serious: Yes (Other)
  Sender: FDA-Public Use
  Company Number: None

PATIENT
  Age: 9 Year
  Sex: Female
  Weight: 25 kg

DRUGS (1)
  1. DUPIXENT [Suspect]
     Active Substance: DUPILUMAB
     Indication: Dermatitis atopic
     Dosage: FREQUENCY : MONTHLY;?
     Route: 058
     Dates: start: 20230131, end: 20230601

REACTIONS (3)
  - Musculoskeletal chest pain [None]
  - Chest pain [None]
  - Eosinophilic pneumonia [None]

NARRATIVE: CASE EVENT DATE: 20230428
